FAERS Safety Report 19685735 (Version 1)
Quarter: 2021Q3

REPORT INFORMATION
  Report Type: Spontaneous
  Country: US (occurrence: US)
  Receive Date: 20210811
  Receipt Date: 20210811
  Transmission Date: 20211014
  Serious: No
  Sender: FDA-Public Use
  Company Number: US-TAKEDA-2021TUS049574

PATIENT
  Sex: Male
  Weight: 81.63 kg

DRUGS (5)
  1. LIALDA [Suspect]
     Active Substance: MESALAMINE
     Indication: COLITIS ULCERATIVE
     Dosage: 4 DOSAGE FORM, QD
     Route: 065
  2. TYLENOL [Concomitant]
     Active Substance: ACETAMINOPHEN
     Indication: MYALGIA
  3. RHINOCORT ALLERGY [Concomitant]
     Active Substance: BUDESONIDE
     Indication: HYPERSENSITIVITY
  4. QVAR REDIHALER [Concomitant]
     Active Substance: BECLOMETHASONE DIPROPIONATE
     Indication: ASTHMA
  5. PREDNISONE. [Concomitant]
     Active Substance: PREDNISONE
     Indication: COLITIS ULCERATIVE

REACTIONS (4)
  - Back pain [Unknown]
  - Abdominal distension [Unknown]
  - Faeces discoloured [Unknown]
  - Arthralgia [Unknown]
